FAERS Safety Report 6727966-9 (Version None)
Quarter: 2010Q2

REPORT INFORMATION
  Report Type: 
  Country: None (occurrence: None)
  Receive Date: 20100517
  Receipt Date: 20100511
  Transmission Date: 20101027
  Serious: Yes (Other)
  Sender: FDA-Public Use
  Company Number: JP-JNJFOC-20100504317

PATIENT

DRUGS (1)
  1. DUROTEP MT PATCH [Suspect]
     Indication: CANCER PAIN
     Route: 062

REACTIONS (3)
  - APHONIA [None]
  - PRODUCTIVE COUGH [None]
  - VOCAL CORD ATROPHY [None]
